FAERS Safety Report 5216831-4 (Version None)
Quarter: 2007Q1

REPORT INFORMATION
  Report Type: 
  Country: None (occurrence: None)
  Receive Date: 20070119
  Receipt Date: 20061116
  Transmission Date: 20070707
  Serious: Yes (Hospitalization, Disabling)
  Sender: FDA-Public Use
  Company Number: 2000080015

PATIENT
  Age: 42 Year
  Sex: Female

DRUGS (1)
  1. FELBATOL [Suspect]
     Indication: COMPLEX PARTIAL SEIZURES
     Dosage: PO
     Route: 048
     Dates: start: 19940101, end: 20000811

REACTIONS (4)
  - APLASTIC ANAEMIA [None]
  - ENTEROBACTER SEPSIS [None]
  - FALL [None]
  - HEAD INJURY [None]
